FAERS Safety Report 4327545-7 (Version None)
Quarter: 2004Q1

REPORT INFORMATION
  Report Type: 
  Country: None (occurrence: None)
  Receive Date: 20040330
  Receipt Date: 20040330
  Transmission Date: 20041129
  Serious: Yes (Hospitalization)
  Sender: FDA-Public Use
  Company Number: None

PATIENT
  Sex: Male

DRUGS (1)
  1. ZITHROMAX [Suspect]
     Indication: INFECTION
     Dosage: 500 MG ONCE DAILY INTRAVENOUS
     Route: 042
     Dates: start: 20030421, end: 20030422

REACTIONS (4)
  - BLISTER [None]
  - DERMATITIS EXFOLIATIVE [None]
  - INJECTION SITE EXTRAVASATION [None]
  - SECRETION DISCHARGE [None]
